FAERS Safety Report 14217319 (Version 1)
Quarter: 2017Q4

REPORT INFORMATION
  Report Type: Spontaneous
  Country: KR (occurrence: KR)
  Receive Date: 20171123
  Receipt Date: 20171123
  Transmission Date: 20180321
  Serious: Yes (Hospitalization, Other)
  Sender: FDA-Public Use
  Company Number: KR-SUN PHARMACEUTICAL INDUSTRIES LTD-2017R1-148943

PATIENT
  Sex: Male

DRUGS (2)
  1. VALPROIC ACID. [Concomitant]
     Active Substance: VALPROIC ACID
     Indication: FOCAL DYSCOGNITIVE SEIZURES
     Dosage: 300 MG, TID
     Route: 065
  2. PHENYTOIN. [Suspect]
     Active Substance: PHENYTOIN
     Indication: FOCAL DYSCOGNITIVE SEIZURES
     Dosage: 200 MG, TID
     Route: 065

REACTIONS (9)
  - Dysphagia [Recovered/Resolved]
  - Nasopharyngeal reflux [Recovered/Resolved]
  - Toxicity to various agents [Unknown]
  - Cerebellar atrophy [Recovered/Resolved]
  - Velopharyngeal incompetence [Recovered/Resolved]
  - Sleep apnoea syndrome [Recovered/Resolved]
  - Polyneuropathy [Recovered/Resolved]
  - Gingival hypertrophy [Unknown]
  - Tonsillar hypertrophy [Recovered/Resolved]
